FAERS Safety Report 23253212 (Version 1)
Quarter: 2023Q4

REPORT INFORMATION
  Report Type: Other
  Country: FR (occurrence: FR)
  Receive Date: 20231202
  Receipt Date: 20231202
  Transmission Date: 20240110
  Serious: Yes (Other)
  Sender: FDA-Public Use
  Company Number: None

PATIENT

DRUGS (6)
  1. ARIPIPRAZOLE [Suspect]
     Active Substance: ARIPIPRAZOLE
     Indication: Acute psychosis
     Dosage: 30 MILLIGRAM, QD
     Route: 048
     Dates: start: 20230619, end: 20231020
  2. TROPATEPINE HYDROCHLORIDE [Suspect]
     Active Substance: TROPATEPINE HYDROCHLORIDE
     Indication: Extrapyramidal disorder
     Dosage: 10 MILLIGRAM, QD
     Route: 048
     Dates: start: 20230703, end: 20231020
  3. LOXAPINE SUCCINATE [Suspect]
     Active Substance: LOXAPINE SUCCINATE
     Indication: Psychotic disorder
     Dosage: 150 MILLIGRAM, QD
     Route: 048
     Dates: start: 20230626, end: 20231011
  4. NITRAZEPAM [Concomitant]
     Active Substance: NITRAZEPAM
     Indication: Product used for unknown indication
     Dosage: UNK
     Route: 065
  5. VALIUM [Concomitant]
     Active Substance: DIAZEPAM
     Indication: Product used for unknown indication
     Dosage: UNK
     Route: 065
  6. CYAMEMAZINE [Concomitant]
     Active Substance: CYAMEMAZINE
     Indication: Sedation
     Dosage: 62.5 MILLIGRAM, QD
     Route: 048
     Dates: start: 20230616, end: 20230626

REACTIONS (1)
  - Dysuria [Recovered/Resolved]

NARRATIVE: CASE EVENT DATE: 20230930
